FAERS Safety Report 13839357 (Version 1)
Quarter: 2017Q3

REPORT INFORMATION
  Report Type: Spontaneous
  Country: US (occurrence: US)
  Receive Date: 20170805
  Receipt Date: 20170805
  Transmission Date: 20171127
  Serious: Yes (Hospitalization)
  Sender: FDA-Public Use
  Company Number: None

PATIENT
  Age: 43 Year
  Sex: Female

DRUGS (12)
  1. CEFEPIME [Concomitant]
     Active Substance: CEFEPIME HYDROCHLORIDE
  2. DAPSONE. [Suspect]
     Active Substance: DAPSONE
     Indication: PROPHYLAXIS
     Route: 048
     Dates: start: 20160825, end: 20170406
  3. OXYCODONE [Concomitant]
     Active Substance: OXYCODONE
  4. VANCOMYCIN [Concomitant]
     Active Substance: VANCOMYCIN
  5. ABACAVIR. [Concomitant]
     Active Substance: ABACAVIR
  6. DOCUSATE [Concomitant]
     Active Substance: DOCUSATE
  7. MERCAPTOPURINE. [Concomitant]
     Active Substance: MERCAPTOPURINE
  8. ONDANSETRON [Concomitant]
     Active Substance: ONDANSETRON
  9. PSEUDOEPHEDRINE [Concomitant]
     Active Substance: PSEUDOEPHEDRINE
  10. CYTARABINE. [Concomitant]
     Active Substance: CYTARABINE
  11. PROCHLORPERAZINE. [Concomitant]
     Active Substance: PROCHLORPERAZINE
  12. VALACYCLOVIR [Concomitant]
     Active Substance: VALACYCLOVIR HYDROCHLORIDE

REACTIONS (5)
  - Pericardial cyst [None]
  - Hypoxia [None]
  - Febrile neutropenia [None]
  - Methaemoglobinaemia [None]
  - Heart rate increased [None]

NARRATIVE: CASE EVENT DATE: 20170406
